FAERS Safety Report 16664878 (Version 1)
Quarter: 2019Q3

REPORT INFORMATION
  Report Type: Spontaneous
  Country: US (occurrence: US)
  Receive Date: 20190803
  Receipt Date: 20190803
  Transmission Date: 20191004
  Serious: Yes (Other)
  Sender: FDA-Public Use
  Company Number: US-ACCORD-069361

PATIENT
  Sex: Female

DRUGS (3)
  1. PARAPLATIN [Suspect]
     Active Substance: CARBOPLATIN
     Indication: BREAST CANCER
     Dosage: DOSE: 176?NUMBER OF CYCLES: 04
     Dates: start: 20131217, end: 20140407
  2. DOCETAXEL ACCORD [Suspect]
     Active Substance: DOCETAXEL
     Indication: BREAST CANCER
     Dosage: START DATE: APPROX 17-DEC-2013 TO 07-APR-2014?DOSE: 176 ?NUMBER OF CYCLES: 04
     Dates: start: 20131217, end: 20140407
  3. HERCEPTIN [Suspect]
     Active Substance: TRASTUZUMAB
     Indication: BREAST CANCER
     Dosage: DOSE: 176?NUMBER OF CYCLES: 04
     Dates: start: 20131217, end: 20140407

REACTIONS (1)
  - Alopecia [Not Recovered/Not Resolved]
